FAERS Safety Report 7399382-0 (Version None)
Quarter: 2011Q1

REPORT INFORMATION
  Report Type: 
  Country: None (occurrence: None)
  Receive Date: 20110328
  Receipt Date: 20110316
  Transmission Date: 20110831
  Serious: Yes (Hospitalization)
  Sender: FDA-Public Use
  Company Number: 2011SP008236

PATIENT
  Age: 50 Year
  Sex: Female
  Weight: 59.8 kg

DRUGS (8)
  1. LIVALO [Concomitant]
  2. REBETOL [Suspect]
     Indication: HEPATITIS C
     Dosage: 800 MG; QD; PO
     Route: 048
     Dates: start: 20100916, end: 20101210
  3. PEG-INTRON [Suspect]
     Indication: HEPATITIS C
     Dosage: 100 MCG; QW; SC, 80 MCG; QW; SC, 90 MCG; QW; SC
     Route: 058
     Dates: start: 20100916, end: 20100924
  4. PEG-INTRON [Suspect]
     Indication: HEPATITIS C
     Dosage: 100 MCG; QW; SC, 80 MCG; QW; SC, 90 MCG; QW; SC
     Route: 058
     Dates: start: 20101001, end: 20101001
  5. PEG-INTRON [Suspect]
     Indication: HEPATITIS C
     Dosage: 100 MCG; QW; SC, 80 MCG; QW; SC, 90 MCG; QW; SC
     Route: 058
     Dates: start: 20101008, end: 20101210
  6. ACTOS [Concomitant]
  7. SEIBULE [Concomitant]
  8. PAXIL [Concomitant]

REACTIONS (1)
  - CHRONIC INFLAMMATORY DEMYELINATING POLYRADICULONEUROPATHY [None]
